FAERS Safety Report 5525147-8 (Version None)
Quarter: 2007Q4

REPORT INFORMATION
  Report Type: 
  Country: None (occurrence: None)
  Receive Date: 20071119
  Receipt Date: 20071105
  Transmission Date: 20080405
  Serious: Yes (Other)
  Sender: FDA-Public Use
  Company Number: POMP-11265

PATIENT
  Sex: 0

DRUGS (2)
  1. MYOZYME [Suspect]
     Indication: GLYCOGEN STORAGE DISEASE TYPE II
  2. CORTICOSTEROIDS [Concomitant]

REACTIONS (2)
  - DISEASE PROGRESSION [None]
  - THERAPEUTIC RESPONSE DECREASED [None]
